FAERS Safety Report 13196905 (Version 1)
Quarter: 2017Q1

REPORT INFORMATION
  Report Type: Spontaneous
  Country: US (occurrence: US)
  Receive Date: 20170208
  Receipt Date: 20170208
  Transmission Date: 20170428
  Serious: No
  Sender: FDA-Public Use
  Company Number: US-AMGEN-USASP2016115976

PATIENT
  Age: 66 Year
  Sex: Male

DRUGS (6)
  1. LUCRIN [Concomitant]
     Active Substance: LEUPROLIDE ACETATE
     Indication: LIFE SUPPORT
     Dosage: 3 MONTHLY
     Dates: start: 20160516
  2. NEULASTA [Suspect]
     Active Substance: PEGFILGRASTIM
     Indication: WHITE BLOOD CELL COUNT ABNORMAL
     Dosage: UNK
     Route: 065
     Dates: start: 20160727
  3. PREDNISOLONE. [Concomitant]
     Active Substance: PREDNISOLONE
     Dosage: 2X5 MG DAILY FOR DURATION OF CHEMOTHERAPY
     Dates: start: 20160725
  4. DEXAMETHASONE. [Concomitant]
     Active Substance: DEXAMETHASONE
     Indication: PROPHYLAXIS OF NAUSEA AND VOMITING
     Dosage: UNK
     Dates: start: 20160724
  5. DOCETAXEL. [Concomitant]
     Active Substance: DOCETAXEL
     Indication: PROSTATE CANCER METASTATIC
     Dosage: UNK
     Route: 042
     Dates: start: 20160725
  6. DEXAMETHASONE. [Concomitant]
     Active Substance: DEXAMETHASONE
     Indication: PROPHYLAXIS

REACTIONS (10)
  - Constipation [Not Recovered/Not Resolved]
  - Hair texture abnormal [Unknown]
  - Nausea [Unknown]
  - Back pain [Not Recovered/Not Resolved]
  - Cheilitis [Unknown]
  - Fatigue [Unknown]
  - Dysgeusia [Unknown]
  - Blood testosterone decreased [Unknown]
  - Prostatic specific antigen abnormal [Unknown]
  - Neck pain [Unknown]

NARRATIVE: CASE EVENT DATE: 2016
